FAERS Safety Report 7475647-9 (Version None)
Quarter: 2011Q2

REPORT INFORMATION
  Report Type: 
  Country: None (occurrence: None)
  Receive Date: 20110512
  Receipt Date: 20110428
  Transmission Date: 20111010
  Serious: Yes (Hospitalization)
  Sender: FDA-Public Use
  Company Number: US-JNJFOC-20110404010

PATIENT
  Sex: Female
  Weight: 46.6 kg

DRUGS (14)
  1. BENTYL [Concomitant]
  2. MESALAMINE [Concomitant]
  3. METHOTREXATE [Concomitant]
  4. PROZAC [Concomitant]
  5. WELCHOL [Concomitant]
  6. PRILOSEC [Concomitant]
  7. PROBIOTICS [Concomitant]
  8. ZANTAC [Concomitant]
  9. CLIOQUINOL [Concomitant]
  10. TRIAMCINOLONE [Concomitant]
     Route: 061
  11. REMICADE [Suspect]
     Indication: INFLAMMATORY BOWEL DISEASE
     Route: 042
  12. ZYRTEC [Concomitant]
  13. BACTROBAN [Concomitant]
     Route: 061
  14. SALICYLIC ACID [Concomitant]
     Route: 061

REACTIONS (1)
  - PYELONEPHRITIS [None]
